FAERS Safety Report 24335929 (Version 4)
Quarter: 2025Q3

REPORT INFORMATION
  Report Type: Spontaneous
  Country: AR (occurrence: AR)
  Receive Date: 20240919
  Receipt Date: 20250704
  Transmission Date: 20251021
  Serious: Yes (Hospitalization, Other)
  Sender: SANDOZ
  Company Number: AR-002147023-NVSC2020AR279941

PATIENT
  Sex: Female
  Weight: 43 kg

DRUGS (4)
  1. OMNITROPE [Suspect]
     Active Substance: SOMATROPIN
     Route: 058
  2. OMNITROPE [Suspect]
     Active Substance: SOMATROPIN
     Route: 058
     Dates: start: 20181018
  3. OMNITROPE [Suspect]
     Active Substance: SOMATROPIN
     Indication: Growth retardation
     Dosage: 0.9 MG, QD
     Route: 058
     Dates: start: 20190409
  4. OMNITROPE [Suspect]
     Active Substance: SOMATROPIN
     Indication: Turner^s syndrome
     Dosage: 1.3 MG, QD (10 MG)
     Route: 058
     Dates: start: 20181018, end: 20240828

REACTIONS (22)
  - Cardiac disorder [Unknown]
  - Lymphopenia [Unknown]
  - Asphyxia [Recovered/Resolved]
  - Loss of consciousness [Unknown]
  - Kidney enlargement [Unknown]
  - Weight gain poor [Unknown]
  - Decreased immune responsiveness [Unknown]
  - Gastrooesophageal reflux disease [Unknown]
  - Blood growth hormone increased [Unknown]
  - Renal disorder [Unknown]
  - Renal disorder [Unknown]
  - Illness [Unknown]
  - Tremor [Unknown]
  - Lymphadenectomy [Unknown]
  - Dyspnoea [Recovered/Resolved]
  - Dyspnoea [Unknown]
  - Hyperhidrosis [Recovered/Resolved]
  - Urinary tract infection [Unknown]
  - Back pain [Unknown]
  - Pyrexia [Unknown]
  - Blood glucose increased [Unknown]
  - Blood glucose increased [Unknown]

NARRATIVE: CASE EVENT DATE: 20250101
